FAERS Safety Report 5377803-2 (Version None)
Quarter: 2007Q3

REPORT INFORMATION
  Report Type: 
  Country: None (occurrence: None)
  Receive Date: 20070703
  Receipt Date: 20070622
  Transmission Date: 20080115
  Serious: Yes (Other)
  Sender: FDA-Public Use
  Company Number: US-PFIZER INC-2007052266

PATIENT
  Sex: Female
  Weight: 88.5 kg

DRUGS (6)
  1. CHANTIX [Suspect]
     Indication: SMOKING CESSATION THERAPY
  2. TRICOR [Concomitant]
     Indication: BLOOD TRIGLYCERIDES INCREASED
  3. NEXIUM [Concomitant]
     Indication: GASTROOESOPHAGEAL REFLUX DISEASE
  4. WELLBUTRIN [Concomitant]
     Indication: DEPRESSION
  5. VITAMIN CAP [Concomitant]
  6. PREMARIN [Concomitant]

REACTIONS (2)
  - DEPRESSION [None]
  - WEIGHT INCREASED [None]
